FAERS Safety Report 14987870 (Version 3)
Quarter: 2018Q2

REPORT INFORMATION
  Report Type: Spontaneous
  Country: US (occurrence: US)
  Receive Date: 20180608
  Receipt Date: 20180627
  Transmission Date: 20180711
  Serious: Yes (Hospitalization, Other)
  Sender: FDA-Public Use
  Company Number: US-CELGENEUS-USA-20180511000

PATIENT
  Age: 64 Year
  Sex: Female
  Weight: 109.41 kg

DRUGS (2)
  1. THALOMID [Suspect]
     Active Substance: THALIDOMIDE
     Indication: PLASMA CELL MYELOMA
     Dosage: 100 MILLIGRAM
     Route: 048
     Dates: start: 201711
  2. THALOMID [Suspect]
     Active Substance: THALIDOMIDE
     Indication: PLASMA CELL MYELOMA RECURRENT
     Dosage: 50 MILLIGRAM
     Route: 048
     Dates: start: 201710

REACTIONS (4)
  - Hypersensitivity [Not Recovered/Not Resolved]
  - Pleural effusion [Unknown]
  - Chronic obstructive pulmonary disease [Not Recovered/Not Resolved]
  - Asthma [Not Recovered/Not Resolved]

NARRATIVE: CASE EVENT DATE: 20180529
